FAERS Safety Report 21553616 (Version 2)
Quarter: 2023Q1

REPORT INFORMATION
  Report Type: Spontaneous
  Country: US (occurrence: US)
  Receive Date: 20221104
  Receipt Date: 20230112
  Transmission Date: 20230417
  Serious: No
  Sender: FDA-Public Use
  Company Number: US-PFIZER INC-PV202200095849

PATIENT
  Age: 70 Year
  Sex: Female

DRUGS (1)
  1. IBRANCE [Suspect]
     Active Substance: PALBOCICLIB
     Dosage: 100 MG, CYCLIC (DAILY FOR 14 DAYS ON/14 DAYS OFF; 28 DAY SUPPLY)

REACTIONS (3)
  - Investigation abnormal [Recovered/Resolved]
  - Off label use [Unknown]
  - Product use issue [Unknown]
